FAERS Safety Report 18749757 (Version 2)
Quarter: 2021Q1

REPORT INFORMATION
  Report Type: Spontaneous
  Country: DE (occurrence: DE)
  Receive Date: 20210117
  Receipt Date: 20210127
  Transmission Date: 20210419
  Serious: Yes (Life-Threatening, Hospitalization, Other)
  Sender: FDA-Public Use
  Company Number: DE-SA-2021SA011377

PATIENT
  Age: 53 Year
  Sex: Female

DRUGS (15)
  1. DEXAMETHASONE. [Suspect]
     Active Substance: DEXAMETHASONE
     Indication: INFILTRATION ANAESTHESIA
     Dosage: 4 MG
     Route: 008
  2. BISOPROLOL SALT NOT SPECIFIED [Suspect]
     Active Substance: BISOPROLOL
     Dosage: 5 MG, QD
     Route: 065
  3. BUPIVACAINE HYDROCHLORIDE. [Suspect]
     Active Substance: BUPIVACAINE HYDROCHLORIDE
     Indication: INFILTRATION ANAESTHESIA
     Dosage: UNK
     Route: 008
  4. BUPIVACAINE HYDROCHLORIDE. [Suspect]
     Active Substance: BUPIVACAINE HYDROCHLORIDE
     Dosage: UNK
     Route: 037
  5. AMLODIPINE [Suspect]
     Active Substance: AMLODIPINE BESYLATE
     Dosage: 5 MG, QD
     Route: 065
  6. LEVOTHYROXINE SODIUM. [Suspect]
     Active Substance: LEVOTHYROXINE SODIUM
     Dosage: 125 MCG, QD
     Route: 065
  7. CANDESARTAN. [Suspect]
     Active Substance: CANDESARTAN
     Dosage: 16 MG, QD
     Route: 065
  8. TRIAMCINOLONE ACETONIDE. [Suspect]
     Active Substance: TRIAMCINOLONE ACETONIDE
     Indication: INFILTRATION ANAESTHESIA
     Dosage: UNK
     Route: 050
  9. TRIAMCINOLONE ACETONIDE. [Suspect]
     Active Substance: TRIAMCINOLONE ACETONIDE
     Dosage: UNK
     Route: 037
  10. TORASEMIDE [Suspect]
     Active Substance: TORSEMIDE
     Dosage: 5 MG, QD
     Route: 065
  11. NALOXONE [Suspect]
     Active Substance: NALOXONE
     Indication: PAIN
     Dosage: 20 MG, BID, NALOXONE W/OXYCODONE
     Route: 048
  12. VALPROATE SODIUM. [Suspect]
     Active Substance: VALPROATE SODIUM
     Dosage: 300 MG, BID
     Route: 065
  13. METAMIZOLE SALT NOT SPECIFIED [Suspect]
     Active Substance: METAMIZOLE
     Indication: PAIN
     Dosage: 1 G, QID
     Route: 042
  14. CELECOXIB. [Suspect]
     Active Substance: CELECOXIB
     Indication: PAIN
     Dosage: 200 MG, QD
     Route: 048
  15. BUPIVACAINE HYDROCHLORIDE. [Suspect]
     Active Substance: BUPIVACAINE HYDROCHLORIDE
     Dosage: UNK
     Route: 050

REACTIONS (12)
  - Erythema [Recovered/Resolved]
  - Necrotising fasciitis [Recovering/Resolving]
  - Interleukin level increased [Recovered/Resolved]
  - Pain in extremity [Recovered/Resolved]
  - Pain [Recovered/Resolved]
  - Cardiovascular insufficiency [Recovered/Resolved]
  - Septic shock [Recovered/Resolved]
  - C-reactive protein increased [Recovered/Resolved]
  - Hypotension [Recovered/Resolved]
  - Escherichia infection [Recovered/Resolved]
  - Procalcitonin increased [Recovered/Resolved]
  - Back pain [Recovered/Resolved]
